FAERS Safety Report 6008119-9 (Version None)
Quarter: 2008Q4

REPORT INFORMATION
  Report Type: 
  Country: None (occurrence: None)
  Receive Date: 20081217
  Receipt Date: 20080826
  Transmission Date: 20090506
  Serious: No
  Sender: FDA-Public Use
  Company Number: US-ASTRAZENECA-2008UW17535

PATIENT
  Age: 97 Year
  Sex: Female
  Weight: 45.8 kg

DRUGS (4)
  1. CRESTOR [Suspect]
     Indication: BLOOD CHOLESTEROL INCREASED
     Route: 048
     Dates: end: 20080101
  2. CRESTOR [Suspect]
     Route: 048
     Dates: start: 20080801
  3. HYDROCHLOROTHIAZIDE [Concomitant]
  4. BLOOD PRESSURE PILLS [Concomitant]

REACTIONS (2)
  - ABDOMINAL PAIN [None]
  - DIARRHOEA [None]
